FAERS Safety Report 24658490 (Version 1)
Quarter: 2024Q4

REPORT INFORMATION
  Report Type: Spontaneous
  Country: FR (occurrence: FR)
  Receive Date: 20241125
  Receipt Date: 20241125
  Transmission Date: 20250115
  Serious: Yes (Other)
  Sender: SANDOZ
  Company Number: FR-IPFR-202400084

PATIENT
  Age: 23 Year
  Sex: Male

DRUGS (1)
  1. RITALIN [Suspect]
     Active Substance: METHYLPHENIDATE HYDROCHLORIDE
     Indication: Disturbance in attention
     Dosage: 30 MG, QD (ROUTE: PROLONGED-RELEASE CAPSULE, HARD) (5 DAYS)
     Route: 065
     Dates: start: 2024, end: 2024

REACTIONS (3)
  - Hepatic cytolysis [Recovering/Resolving]
  - Intentional product misuse [Unknown]
  - Product use in unapproved indication [Unknown]

NARRATIVE: CASE EVENT DATE: 20241111
